FAERS Safety Report 8609135-0 (Version None)
Quarter: 2012Q3

REPORT INFORMATION
  Report Type: 
  Country: None (occurrence: None)
  Receive Date: 20120808
  Receipt Date: 20120726
  Transmission Date: 20120928
  Serious: Yes (Life-Threatening)
  Sender: FDA-Public Use
  Company Number: 2012P1051799

PATIENT
  Age: 55 Year
  Sex: Male

DRUGS (1)
  1. NICARDIPINE HCL [Suspect]
     Indication: HYPERTENSION
     Dosage: 4 MG;QH;IV, 5 MG;X1;IV
     Route: 042

REACTIONS (3)
  - RESPIRATORY DISTRESS [None]
  - CONDITION AGGRAVATED [None]
  - HYPOXIA [None]
